FAERS Safety Report 17707931 (Version 3)
Quarter: 2020Q3

REPORT INFORMATION
  Report Type: Report from Study
  Country: None (occurrence: US)
  Receive Date: 20200425
  Receipt Date: 20200828
  Transmission Date: 20201102
  Serious: Yes (Other)
  Sender: FDA-Public Use
  Company Number: US-ABBVIE-17K-163-3066475-00

PATIENT
  Age: 72 Year
  Sex: Female
  Weight: 79 kg

DRUGS (29)
  1. IMBRUVICA [Suspect]
     Active Substance: IBRUTINIB
     Indication: NON-HODGKIN^S LYMPHOMA
     Dosage: 280 MG,QD
     Route: 048
     Dates: start: 20170309, end: 20170310
  2. IMBRUVICA [Suspect]
     Active Substance: IBRUTINIB
     Route: 048
     Dates: start: 20170308
  3. MARIJUANA [Concomitant]
     Active Substance: CANNABIS SATIVA SUBSP. INDICA TOP
     Indication: ARTHRALGIA
     Dosage: UNK
  4. PREDNISONE. [Concomitant]
     Active Substance: PREDNISONE
     Indication: PRODUCT USED FOR UNKNOWN INDICATION
     Dosage: UNK
  5. IMBRUVICA [Suspect]
     Active Substance: IBRUTINIB
     Indication: MARGINAL ZONE LYMPHOMA
     Dosage: 140 MG, QD
     Route: 048
     Dates: start: 20170306
  6. IMBRUVICA [Suspect]
     Active Substance: IBRUTINIB
     Dosage: 560 MG, QD
     Route: 048
     Dates: start: 20170306
  7. SEROQUEL [Concomitant]
     Active Substance: QUETIAPINE FUMARATE
     Indication: MENTAL DISORDER
     Dosage: UNK, PRN
  8. IMBRUVICA [Suspect]
     Active Substance: IBRUTINIB
     Dosage: 560 MG,QD
     Route: 048
     Dates: start: 20170308, end: 20180505
  9. IMBRUVICA [Suspect]
     Active Substance: IBRUTINIB
     Dosage: 560 MG,QD
     Route: 048
     Dates: start: 20170311
  10. IMBRUVICA [Suspect]
     Active Substance: IBRUTINIB
     Dosage: 560 MG, QD
     Route: 048
  11. SEROQUEL [Concomitant]
     Active Substance: QUETIAPINE FUMARATE
     Indication: MUSCLE SPASMS
  12. PRILOSEC [Concomitant]
     Active Substance: OMEPRAZOLE MAGNESIUM
     Indication: ULCER
  13. MOTRIN [Concomitant]
     Active Substance: IBUPROFEN
     Indication: PRODUCT USED FOR UNKNOWN INDICATION
     Dosage: UNK
  14. LIPITOR [Concomitant]
     Active Substance: ATORVASTATIN CALCIUM
     Indication: PRODUCT USED FOR UNKNOWN INDICATION
     Dosage: UNK
  15. SEROQUEL [Concomitant]
     Active Substance: QUETIAPINE FUMARATE
     Indication: ANXIETY
  16. SEROQUEL [Concomitant]
     Active Substance: QUETIAPINE FUMARATE
     Indication: SLEEP DISORDER
  17. DETROL [Concomitant]
     Active Substance: TOLTERODINE TARTRATE
     Indication: PRODUCT USED FOR UNKNOWN INDICATION
     Dosage: UNK
  18. IMBRUVICA [Suspect]
     Active Substance: IBRUTINIB
     Indication: LYMPHOMA
     Dosage: 140 MG, QD
     Route: 048
     Dates: start: 20170308, end: 20170309
  19. IMBRUVICA [Suspect]
     Active Substance: IBRUTINIB
     Dosage: 420 MG,QD
     Route: 048
     Dates: start: 20170310, end: 20170311
  20. IMBRUVICA [Suspect]
     Active Substance: IBRUTINIB
     Dosage: 560 MG, QD
     Route: 048
     Dates: start: 201705
  21. XANAX [Concomitant]
     Active Substance: ALPRAZOLAM
     Indication: ANXIETY
  22. CLONAZEPAM. [Concomitant]
     Active Substance: CLONAZEPAM
     Indication: ANXIETY
     Dosage: UNK, PRN
  23. LOVASTATIN. [Concomitant]
     Active Substance: LOVASTATIN
     Indication: BLOOD CHOLESTEROL INCREASED
  24. PROBIOTIC                          /06395501/ [Concomitant]
     Active Substance: BIFIDOBACTERIUM ANIMALIS LACTIS
     Indication: PRODUCT USED FOR UNKNOWN INDICATION
     Dosage: UNK, QD
     Route: 048
  25. SYNTHROID [Concomitant]
     Active Substance: LEVOTHYROXINE SODIUM
     Indication: THYROID DISORDER
     Dosage: 135 UG, QD
     Route: 048
  26. MYRBETRIQ [Concomitant]
     Active Substance: MIRABEGRON
     Indication: URINARY INCONTINENCE
  27. IMBRUVICA [Suspect]
     Active Substance: IBRUTINIB
     Dosage: 560 MG,QD
     Route: 048
     Dates: start: 201703
  28. EFFEXOR [Concomitant]
     Active Substance: VENLAFAXINE HYDROCHLORIDE
     Indication: ANXIETY
     Dosage: DAILY
  29. CLOZAPINE. [Concomitant]
     Active Substance: CLOZAPINE
     Indication: PRODUCT USED FOR UNKNOWN INDICATION

REACTIONS (85)
  - Rhinorrhoea [Not Recovered/Not Resolved]
  - Haemoglobin abnormal [Not Recovered/Not Resolved]
  - Pigmentation disorder [Not Recovered/Not Resolved]
  - Gastric ulcer [Not Recovered/Not Resolved]
  - Scratch [Recovering/Resolving]
  - Feeling abnormal [Not Recovered/Not Resolved]
  - Pain in jaw [Recovered/Resolved]
  - Middle insomnia [Unknown]
  - Malaise [Recovered/Resolved]
  - Diarrhoea [Not Recovered/Not Resolved]
  - Peripheral swelling [Not Recovered/Not Resolved]
  - Rash macular [Recovered/Resolved]
  - Somnolence [Unknown]
  - Aphasia [Not Recovered/Not Resolved]
  - Mass [Unknown]
  - Mood altered [Not Recovered/Not Resolved]
  - Solar dermatitis [Recovering/Resolving]
  - Weight increased [Unknown]
  - Dyspepsia [Not Recovered/Not Resolved]
  - Joint swelling [Not Recovered/Not Resolved]
  - Emotional distress [Unknown]
  - Taste disorder [Not Recovered/Not Resolved]
  - Red blood cell count abnormal [Not Recovered/Not Resolved]
  - Nodule [Recovered/Resolved]
  - Paraesthesia [Unknown]
  - Ear pain [Recovered/Resolved]
  - Wrong product administered [Unknown]
  - Chest pain [Recovering/Resolving]
  - Dry skin [Recovering/Resolving]
  - Contusion [Not Recovered/Not Resolved]
  - Nausea [Not Recovered/Not Resolved]
  - Pain in extremity [Recovering/Resolving]
  - Arthropathy [Not Recovered/Not Resolved]
  - Palpitations [Unknown]
  - Blood pressure abnormal [Unknown]
  - Delayed recovery from anaesthesia [Unknown]
  - Weight fluctuation [Unknown]
  - Hiccups [Not Recovered/Not Resolved]
  - Head injury [Unknown]
  - Biopsy [Recovering/Resolving]
  - Hunger [Unknown]
  - Depression [Unknown]
  - Insomnia [Recovered/Resolved]
  - Immune system disorder [Not Recovered/Not Resolved]
  - Eye haemorrhage [Unknown]
  - Rash macular [Unknown]
  - Visual impairment [Not Recovered/Not Resolved]
  - Urinary incontinence [Unknown]
  - Splenomegaly [Recovered/Resolved]
  - Appetite disorder [Not Recovered/Not Resolved]
  - Tooth extraction [Unknown]
  - Headache [Not Recovered/Not Resolved]
  - Dizziness [Recovered/Resolved]
  - Rash [Not Recovered/Not Resolved]
  - Cyst [Recovered/Resolved]
  - Urinary tract infection [Unknown]
  - Weight decreased [Recovering/Resolving]
  - Cataract [Unknown]
  - Thyroid function test abnormal [Unknown]
  - Procedural pain [Unknown]
  - Dry skin [Not Recovered/Not Resolved]
  - Product dose omission issue [Unknown]
  - Eye oedema [Recovered/Resolved]
  - Nasopharyngitis [Not Recovered/Not Resolved]
  - Dry eye [Recovered/Resolved]
  - Muscle spasms [Unknown]
  - Wheezing [Unknown]
  - Parosmia [Unknown]
  - Memory impairment [Not Recovered/Not Resolved]
  - Fatigue [Not Recovered/Not Resolved]
  - Pyrexia [Unknown]
  - Arthralgia [Not Recovered/Not Resolved]
  - Constipation [Not Recovered/Not Resolved]
  - Laboratory test abnormal [Recovered/Resolved]
  - Musculoskeletal stiffness [Not Recovered/Not Resolved]
  - Chest discomfort [Not Recovered/Not Resolved]
  - Sensitive skin [Not Recovered/Not Resolved]
  - Joint stiffness [Recovering/Resolving]
  - Adverse event [Unknown]
  - Polyarthritis [Not Recovered/Not Resolved]
  - White blood cell count abnormal [Not Recovered/Not Resolved]
  - Platelet count decreased [Not Recovered/Not Resolved]
  - Gait disturbance [Unknown]
  - Pruritus [Recovering/Resolving]
  - Skin wrinkling [Recovered/Resolved]

NARRATIVE: CASE EVENT DATE: 2017
